FAERS Safety Report 5657026-X (Version None)
Quarter: 2008Q1

REPORT INFORMATION
  Report Type: 
  Country: None (occurrence: None)
  Receive Date: 20080310
  Receipt Date: 20080303
  Transmission Date: 20080703
  Serious: Yes (Other)
  Sender: FDA-Public Use
  Company Number: US-ASTRAZENECA-2008UW01916

PATIENT
  Age: 20534 Day
  Sex: Female
  Weight: 79.5 kg

DRUGS (3)
  1. PRILOSEC OTC [Suspect]
     Indication: DYSPEPSIA
     Route: 048
     Dates: start: 20080122, end: 20080122
  2. LEVOTHYROXINE SODIUM [Concomitant]
     Indication: THYROID DISORDER
     Dosage: ONE EVERY DAY
  3. TRAZODONE HCL [Concomitant]
     Indication: SLEEP DISORDER
     Dosage: ONE TO TWO

REACTIONS (4)
  - ASTHMA [None]
  - HYPERSENSITIVITY [None]
  - PHARYNGEAL OEDEMA [None]
  - PRURITUS [None]
